FAERS Safety Report 18936952 (Version 2)
Quarter: 2021Q4

REPORT INFORMATION
  Report Type: Spontaneous
  Country: IE (occurrence: None)
  Receive Date: 20210225
  Receipt Date: 20211229
  Transmission Date: 20220303
  Serious: Yes (Other)
  Sender: FDA-Public Use
  Company Number: IE-MLMSERVICE-20210211-2717430-1

PATIENT
  Age: 5 Year
  Sex: Male

DRUGS (8)
  1. METHOTREXATE [Suspect]
     Active Substance: METHOTREXATE
     Indication: B precursor type acute leukaemia
     Dosage: CYCLICAL
     Route: 065
     Dates: start: 2013, end: 2016
  2. CYTARABINE [Suspect]
     Active Substance: CYTARABINE
     Indication: B precursor type acute leukaemia
     Dosage: CYCLICAL
     Route: 065
     Dates: start: 2013, end: 2016
  3. VINCRISTINE [Suspect]
     Active Substance: VINCRISTINE
     Indication: B precursor type acute leukaemia
     Dosage: CYCLICAL
     Route: 065
     Dates: start: 2013, end: 2016
  4. DOXORUBICIN [Suspect]
     Active Substance: DOXORUBICIN
     Indication: B precursor type acute leukaemia
     Dosage: CYCLICAL
     Route: 065
     Dates: start: 2013, end: 2016
  5. PEGASPARGASE [Suspect]
     Active Substance: PEGASPARGASE
     Indication: B precursor type acute leukaemia
     Dosage: CYCLICAL
     Route: 065
     Dates: start: 2013, end: 2016
  6. CYCLOPHOSPHAMIDE [Suspect]
     Active Substance: CYCLOPHOSPHAMIDE
     Indication: B precursor type acute leukaemia
     Dosage: CYCLICAL
     Route: 065
     Dates: start: 2013, end: 2016
  7. DEXAMETHASONE [Suspect]
     Active Substance: DEXAMETHASONE
     Indication: B precursor type acute leukaemia
     Dosage: CYCLICAL
     Route: 065
     Dates: start: 2013, end: 2016
  8. MERCAPTOPURINE [Suspect]
     Active Substance: MERCAPTOPURINE
     Indication: B precursor type acute leukaemia
     Dosage: CYCLICAL
     Route: 065
     Dates: start: 2013, end: 2016

REACTIONS (2)
  - Rash [Unknown]
  - Lentigo [Not Recovered/Not Resolved]

NARRATIVE: CASE EVENT DATE: 20160101
